FAERS Safety Report 15362689 (Version 2)
Quarter: 2019Q2

REPORT INFORMATION
  Report Type: Spontaneous
  Country: ES (occurrence: ES)
  Receive Date: 20180907
  Receipt Date: 20190517
  Transmission Date: 20190711
  Serious: Yes (Hospitalization)
  Sender: FDA-Public Use
  Company Number: PHHY2018ES088626

PATIENT
  Age: 51 Year
  Sex: Male

DRUGS (6)
  1. HYOSCINE BUTYLBROMIDE [Suspect]
     Active Substance: BUTYLSCOPOLAMINE BROMIDE
     Indication: ABDOMINAL PAIN
  2. PANTOPRAZOLE [Suspect]
     Active Substance: PANTOPRAZOLE
     Indication: BILIARY COLIC
     Dosage: 40 MG, UNK
     Route: 042
  3. HYOSCINE BUTYLBROMIDE [Suspect]
     Active Substance: BUTYLSCOPOLAMINE BROMIDE
     Indication: BILIARY COLIC
     Dosage: 20 MG, UNK
     Route: 042
  4. METOCLOPRAMIDE. [Suspect]
     Active Substance: METOCLOPRAMIDE
     Indication: BILIARY COLIC
     Dosage: 10 MG, UNK
     Route: 042
  5. SCOPOLAMINE BUTYL BROMIDE [Suspect]
     Active Substance: BUTYLSCOPOLAMINE BROMIDE
     Indication: BILIARY COLIC
     Dosage: 20 MG, UNK
     Route: 065
  6. METAMIZOLE [Suspect]
     Active Substance: METAMIZOLE
     Indication: BILIARY COLIC
     Dosage: 2 G, UNK
     Route: 042

REACTIONS (12)
  - Loss of consciousness [Recovering/Resolving]
  - Malaise [Recovering/Resolving]
  - Cardio-respiratory arrest [Recovering/Resolving]
  - Hypotension [Recovering/Resolving]
  - Troponin increased [Recovered/Resolved]
  - Abdominal pain upper [Recovering/Resolving]
  - Electrocardiogram ST-T segment elevation [Recovering/Resolving]
  - Hyperhidrosis [Recovering/Resolving]
  - Kounis syndrome [Unknown]
  - Vomiting [Recovering/Resolving]
  - Hypersensitivity [Unknown]
  - Rash [Unknown]
